FAERS Safety Report 5242926-5 (Version None)
Quarter: 2007Q1

REPORT INFORMATION
  Report Type: 
  Country: None (occurrence: None)
  Receive Date: 20070215
  Receipt Date: 20070206
  Transmission Date: 20070707
  Serious: Yes (Hospitalization)
  Sender: FDA-Public Use
  Company Number: 2006BI018903

PATIENT
  Age: 67 Year
  Sex: Female

DRUGS (7)
  1. NATALIZUMAB [Suspect]
     Indication: MULTIPLE SCLEROSIS
     Dosage: 300 MG; QM; IV
     Route: 042
     Dates: start: 20050222, end: 20050301
  2. NATALIZUMAB [Suspect]
     Indication: MULTIPLE SCLEROSIS
     Dosage: 300 MG; QM; IV
     Route: 042
     Dates: start: 20061113
  3. CALCIUM [Concomitant]
  4. CENTRUM [Concomitant]
  5. ENABLEX [Concomitant]
  6. DDAVP (NEEDS NO REFRIGERATION) [Concomitant]
  7. METFORMIN HCL [Concomitant]

REACTIONS (1)
  - URINARY RETENTION [None]
